FAERS Safety Report 6520226-0 (Version None)
Quarter: 2009Q4

REPORT INFORMATION
  Report Type: 
  Country: None (occurrence: None)
  Receive Date: 20091229
  Receipt Date: 20091222
  Transmission Date: 20100525
  Serious: Yes (Other)
  Sender: FDA-Public Use
  Company Number: PHHY2009JP58762

PATIENT
  Sex: Female

DRUGS (2)
  1. FEMARA [Suspect]
     Indication: BREAST CANCER
     Route: 048
  2. BLOOD TRANSFUSION, AUXILIARY PRODUCTS [Concomitant]

REACTIONS (2)
  - ANAEMIA [None]
  - PLATELET COUNT DECREASED [None]
